FAERS Safety Report 8604257-2 (Version None)
Quarter: 2012Q3

REPORT INFORMATION
  Report Type: 
  Country: None (occurrence: None)
  Receive Date: 20120820
  Receipt Date: 20120816
  Transmission Date: 20120928
  Serious: No
  Sender: FDA-Public Use
  Company Number: US-BAYER-2012-084868

PATIENT
  Age: 53 Year
  Sex: Female

DRUGS (1)
  1. GADAVIST [Suspect]
     Indication: NUCLEAR MAGNETIC RESONANCE IMAGING ABDOMINAL
     Dosage: UNK
     Dates: start: 20120815, end: 20120815

REACTIONS (1)
  - URTICARIA [None]
